FAERS Safety Report 25194757 (Version 4)
Quarter: 2025Q4

REPORT INFORMATION
  Report Type: Report from Study
  Country: JP (occurrence: JP)
  Receive Date: 20250414
  Receipt Date: 20251017
  Transmission Date: 20260118
  Serious: Yes (Other)
  Sender: ABBVIE
  Company Number: JP-TAKEDA-2025TJP001038

PATIENT
  Age: 43 Year
  Sex: Male
  Weight: 49.8 kg

DRUGS (1)
  1. LEUPROLIDE ACETATE [Suspect]
     Active Substance: LEUPROLIDE ACETATE
     Indication: Bulbospinal muscular atrophy congenital
     Dosage: 11.25 MILLIGRAM, Q3MONTHS
     Route: 058
     Dates: start: 20190517

REACTIONS (3)
  - Rib fracture [Recovered/Resolved]
  - Low density lipoprotein increased [Recovering/Resolving]
  - Rib fracture [Recovered/Resolved]

NARRATIVE: CASE EVENT DATE: 20220225
